FAERS Safety Report 7562615-1 (Version None)
Quarter: 2011Q2

REPORT INFORMATION
  Report Type: 
  Country: None (occurrence: None)
  Receive Date: 20110622
  Receipt Date: 20110614
  Transmission Date: 20111010
  Serious: Yes (Hospitalization)
  Sender: FDA-Public Use
  Company Number: IE-US-EMD SERONO, INC.-7031776

PATIENT
  Sex: Female

DRUGS (1)
  1. REBIF [Suspect]
     Indication: RELAPSING-REMITTING MULTIPLE SCLEROSIS
     Dates: start: 20090826

REACTIONS (5)
  - MULTIPLE SCLEROSIS RELAPSE [None]
  - FATIGUE [None]
  - PAIN IN EXTREMITY [None]
  - INJECTION SITE LACERATION [None]
  - WRONG TECHNIQUE IN DRUG USAGE PROCESS [None]
